FAERS Safety Report 9198688 (Version 2)
Quarter: 2013Q2

REPORT INFORMATION
  Report Type: Spontaneous
  Country: JP (occurrence: JP)
  Receive Date: 20130329
  Receipt Date: 20130409
  Transmission Date: 20140414
  Serious: Yes (Hospitalization)
  Sender: FDA-Public Use
  Company Number: JP-PFIZER INC-2013100762

PATIENT
  Age: 50 Year
  Sex: Male

DRUGS (1)
  1. JZOLOFT [Suspect]
     Dosage: 50 MG DAILY
     Route: 048

REACTIONS (2)
  - Foreign body [Recovered/Resolved]
  - Oesophageal ulcer [Recovered/Resolved]
